FAERS Safety Report 7935672-8 (Version None)
Quarter: 2011Q4

REPORT INFORMATION
  Report Type: 
  Country: None (occurrence: None)
  Receive Date: 20111121
  Receipt Date: 20111103
  Transmission Date: 20120403
  Serious: Yes (Hospitalization, Other)
  Sender: FDA-Public Use
  Company Number: 2011MA015985

PATIENT
  Age: 7 Year
  Sex: Male

DRUGS (11)
  1. ETHAMBUTOL HYDROCHLORIDE [Suspect]
  2. PYRAZINAMIDE [Suspect]
  3. PYRIDOXINE HCL [Suspect]
  4. INH [Suspect]
  5. FLUCONAZOLE [Suspect]
  6. RIFAMPIN [Suspect]
     Indication: TUBERCULOSIS
  7. CEFTRIAXONE [Suspect]
     Indication: TUBERCULOSIS
  8. VITAMIN K TAB [Concomitant]
  9. ACETAMINOPHEN [Concomitant]
  10. LACTULOSE [Concomitant]
  11. ACETYLCYSTEINE [Concomitant]

REACTIONS (16)
  - PERICARDIAL EFFUSION [None]
  - CACHEXIA [None]
  - ACUTE HEPATIC FAILURE [None]
  - DISSEMINATED TUBERCULOSIS [None]
  - MULTIPLE-DRUG RESISTANCE [None]
  - DISORIENTATION [None]
  - PYREXIA [None]
  - COCCIDIOIDOMYCOSIS [None]
  - CENTRAL NERVOUS SYSTEM LESION [None]
  - HEPATOSPLENOMEGALY [None]
  - MIOSIS [None]
  - HAEMATOCRIT DECREASED [None]
  - GALLBLADDER DISORDER [None]
  - AGGRESSION [None]
  - PUPILLARY REFLEX IMPAIRED [None]
  - HEPATOTOXICITY [None]
